FAERS Safety Report 18916396 (Version 1)
Quarter: 2021Q1

REPORT INFORMATION
  Report Type: Spontaneous
  Country: US (occurrence: US)
  Receive Date: 20210219
  Receipt Date: 20210219
  Transmission Date: 20210420
  Serious: Yes (Life-Threatening, Disabling)
  Sender: FDA-Public Use
  Company Number: None

PATIENT
  Age: 78 Year
  Sex: Female

DRUGS (1)
  1. RECLAST [Suspect]
     Active Substance: ZOLEDRONIC ACID
     Indication: BONE LOSS
     Route: 042
     Dates: start: 20201012

REACTIONS (16)
  - Blood pressure increased [None]
  - Pain [None]
  - Oropharyngeal pain [None]
  - Tooth fracture [None]
  - Tooth loss [None]
  - Stomatitis [None]
  - Necrosis [None]
  - Pain in jaw [None]
  - Neck pain [None]
  - Swelling [None]
  - Pain in extremity [None]
  - Headache [None]
  - Insomnia [None]
  - Nausea [None]
  - Arthralgia [None]
  - Inflammation [None]

NARRATIVE: CASE EVENT DATE: 20201016
